FAERS Safety Report 16223158 (Version 1)
Quarter: 2019Q2

REPORT INFORMATION
  Report Type: Spontaneous
  Country: US (occurrence: US)
  Receive Date: 20190422
  Receipt Date: 20190422
  Transmission Date: 20190711
  Serious: No
  Sender: FDA-Public Use
  Company Number: US-SA-2019SA110050

PATIENT
  Sex: Male

DRUGS (19)
  1. PRALUENT [Suspect]
     Active Substance: ALIROCUMAB
     Dosage: 150 MG, QOW
     Route: 058
  2. ADVIL [IBUPROFEN] [Concomitant]
     Active Substance: IBUPROFEN
  3. METOPROLOL SUCCINATE. [Concomitant]
     Active Substance: METOPROLOL SUCCINATE
  4. DORZOLAMIDE HCL [Concomitant]
     Active Substance: DORZOLAMIDE HYDROCHLORIDE
  5. TIMOLOL MALEATE. [Concomitant]
     Active Substance: TIMOLOL MALEATE
  6. TRAVATAN Z [Concomitant]
     Active Substance: TRAVOPROST
  7. FEXOFENADINE [Concomitant]
     Active Substance: FEXOFENADINE\FEXOFENADINE HYDROCHLORIDE
  8. FUROSEMIDE. [Concomitant]
     Active Substance: FUROSEMIDE
  9. VIAGRA [Concomitant]
     Active Substance: SILDENAFIL CITRATE
  10. METHYLPREDNISOLONE. [Concomitant]
     Active Substance: METHYLPREDNISOLONE
  11. CALCIUM CARBONATE. [Concomitant]
     Active Substance: CALCIUM CARBONATE
  12. LISINOPRIL. [Concomitant]
     Active Substance: LISINOPRIL
  13. MYRBETRIQ [Concomitant]
     Active Substance: MIRABEGRON
  14. ROSUVASTATIN CALCIUM. [Concomitant]
     Active Substance: ROSUVASTATIN CALCIUM
  15. ALPHAGAN P [Concomitant]
     Active Substance: BRIMONIDINE TARTRATE
  16. TYLENOL [Concomitant]
     Active Substance: ACETAMINOPHEN
  17. ZANTAC [Concomitant]
     Active Substance: RANITIDINE HYDROCHLORIDE
  18. ASPIRIN EC [Concomitant]
     Active Substance: ASPIRIN
  19. LISINOPRIL AND HYDROCHLOROTHIAZIDE [Concomitant]
     Active Substance: HYDROCHLOROTHIAZIDE\LISINOPRIL

REACTIONS (1)
  - Influenza like illness [Unknown]
